FAERS Safety Report 6246028-0 (Version None)
Quarter: 2009Q2

REPORT INFORMATION
  Report Type: 
  Country: None (occurrence: None)
  Receive Date: 20090626
  Receipt Date: 20081125
  Transmission Date: 20091009
  Serious: No
  Sender: FDA-Public Use
  Company Number: A0758329A

PATIENT
  Age: 67 Year
  Sex: Male

DRUGS (1)
  1. IMITREX [Suspect]
     Indication: MIGRAINE
     Dosage: 50MG AS REQUIRED
     Route: 048
     Dates: start: 19950101

REACTIONS (2)
  - ASTHENIA [None]
  - DRY MOUTH [None]
